FAERS Safety Report 9356834 (Version 1)
Quarter: 2013Q2

REPORT INFORMATION
  Report Type: Spontaneous
  Country: US (occurrence: US)
  Receive Date: 20130620
  Receipt Date: 20130620
  Transmission Date: 20140414
  Serious: No
  Sender: FDA-Public Use
  Company Number: US-009507513-1306USA006076

PATIENT
  Age: 59 Year
  Sex: Male

DRUGS (10)
  1. PEGINTRON [Suspect]
     Indication: HEPATITIS C
     Dosage: 120 MICROGRAM, ONCE A WEEK
     Route: 058
     Dates: start: 20130510
  2. TELAPREVIR [Suspect]
  3. RIBASPHERE [Suspect]
  4. CLONIDINE [Concomitant]
  5. METOPROLOL [Concomitant]
  6. HYDROCHLOROTHIAZIDE (+) LISINOPRIL [Concomitant]
  7. MELATONIN [Concomitant]
  8. CHAMOMILE [Concomitant]
  9. OMEGA-3 MARINE TRIGLYCERIDES [Concomitant]
  10. WALGREENS SLEEP II NIGHTIME SLEEP AID [Concomitant]

REACTIONS (3)
  - Anorectal discomfort [Unknown]
  - Rash [Unknown]
  - Anal pruritus [Unknown]
